FAERS Safety Report 6413011-1 (Version None)
Quarter: 2009Q4

REPORT INFORMATION
  Report Type: 
  Country: None (occurrence: None)
  Receive Date: 20091023
  Receipt Date: 20091023
  Transmission Date: 20100525
  Serious: Yes (Other)
  Sender: FDA-Public Use
  Company Number: None

PATIENT
  Sex: Female

DRUGS (1)
  1. REFRESH DRY EYE THERAPY [Suspect]
     Indication: DRY EYE
     Dosage: Q2H EYES LAST DATE 10/3/0

REACTIONS (2)
  - EYE IRRITATION [None]
  - PRODUCT COLOUR ISSUE [None]
